FAERS Safety Report 8417394-2 (Version None)
Quarter: 2012Q2

REPORT INFORMATION
  Report Type: 
  Country: None (occurrence: None)
  Receive Date: 20120606
  Receipt Date: 20120523
  Transmission Date: 20120825
  Serious: No
  Sender: FDA-Public Use
  Company Number: US-B.I. PHARMACEUTICALS,INC./RIDGEFIELD-2012-BP-11522BP

PATIENT
  Sex: Male

DRUGS (12)
  1. METOPROLOL TARTRATE [Concomitant]
     Indication: HYPERTENSION
     Dates: start: 20070101
  2. PRADAXA [Suspect]
     Indication: CHRONIC OBSTRUCTIVE PULMONARY DISEASE
     Dosage: 300 MG
     Route: 048
     Dates: start: 20110501
  3. ARICEPT [Concomitant]
     Dates: start: 20100101
  4. BUPROPION HYDROCHLORIDE [Concomitant]
     Dates: start: 20111101
  5. NEXIUM [Concomitant]
     Indication: DYSPEPSIA
     Dates: start: 20070101
  6. SPIRIVA [Concomitant]
     Indication: EMPHYSEMA
     Dosage: 18 MCG
     Route: 055
     Dates: start: 20070101
  7. VITAMIN B COMPLEX CAP [Concomitant]
     Indication: SUPPLEMENTATION THERAPY
     Dates: start: 20070101
  8. CLONAZEPAM [Concomitant]
     Indication: INSOMNIA
     Dates: start: 20100101
  9. NOVARIL [Concomitant]
     Dates: start: 20100101
  10. FISH OIL [Concomitant]
     Indication: SUPPLEMENTATION THERAPY
     Dates: start: 20070101
  11. GLUCOSAMINE MSM [Concomitant]
     Indication: SUPPLEMENTATION THERAPY
     Dates: start: 20070101
  12. COQ10 [Concomitant]
     Indication: SUPPLEMENTATION THERAPY

REACTIONS (1)
  - PLATELET COUNT DECREASED [None]
